FAERS Safety Report 15425768 (Version 2)
Quarter: 2018Q4

REPORT INFORMATION
  Report Type: Report from Study
  Country: None (occurrence: US)
  Receive Date: 20180925
  Receipt Date: 20181008
  Transmission Date: 20190204
  Serious: Yes (Hospitalization, Other)
  Sender: FDA-Public Use
  Company Number: US-ABBVIE-18K-163-2497101-00

PATIENT
  Sex: Female

DRUGS (1)
  1. HUMIRA [Suspect]
     Active Substance: ADALIMUMAB
     Indication: CROHN^S DISEASE
     Route: 058
     Dates: start: 201809

REACTIONS (3)
  - Urinary tract infection [Recovering/Resolving]
  - Small intestinal obstruction [Recovered/Resolved]
  - Gastric ulcer [Recovering/Resolving]

NARRATIVE: CASE EVENT DATE: 2018
